FAERS Safety Report 13763676 (Version 7)
Quarter: 2018Q1

REPORT INFORMATION
  Report Type: Spontaneous
  Country: JP (occurrence: JP)
  Receive Date: 20170718
  Receipt Date: 20180205
  Transmission Date: 20180508
  Serious: Yes (Death, Hospitalization, Other)
  Sender: FDA-Public Use
  Company Number: JP-PFIZER INC-2017303098

PATIENT
  Age: 67 Year
  Sex: Male
  Weight: 71 kg

DRUGS (19)
  1. CISPLATIN. [Suspect]
     Active Substance: CISPLATIN
     Dosage: 110 MG, 1X/DAY
     Route: 041
     Dates: start: 20150522, end: 20150522
  2. CISPLATIN. [Suspect]
     Active Substance: CISPLATIN
     Dosage: 91 MG, 1X/DAY
     Route: 041
     Dates: start: 20150626, end: 20150626
  3. EMEND [Concomitant]
     Active Substance: APREPITANT
     Dosage: UNK
     Dates: start: 20150522, end: 20150813
  4. LORAZEPAM. [Concomitant]
     Active Substance: LORAZEPAM
     Dosage: UNK
     Dates: start: 20150727, end: 20150816
  5. IRINOTECAN HCL [Suspect]
     Active Substance: IRINOTECAN HYDROCHLORIDE
     Dosage: 40 MG/M2, CYCLIC (DECREASED)
  6. IRINOTECAN HCL [Suspect]
     Active Substance: IRINOTECAN HYDROCHLORIDE
     Dosage: 110 MG, 1X/DAY
     Route: 041
     Dates: start: 20150522, end: 20150522
  7. IRINOTECAN HCL [Suspect]
     Active Substance: IRINOTECAN HYDROCHLORIDE
     Dosage: 91 MG, 1X/DAY
     Route: 041
     Dates: start: 20150626, end: 20150626
  8. CISPLATIN. [Suspect]
     Active Substance: CISPLATIN
     Dosage: 50 MG/M2, CYCLIC (DECREASED AND NOT ADMINISTERED ON DAY 15)
  9. ALOXI [Concomitant]
     Active Substance: PALONOSETRON HYDROCHLORIDE
     Dosage: UNK
     Dates: start: 20150522, end: 20150811
  10. CISPLATIN. [Suspect]
     Active Substance: CISPLATIN
     Dosage: 40 MG/M2, CYCLIC (DECREASED)
  11. CISPLATIN. [Suspect]
     Active Substance: CISPLATIN
     Dosage: 73 MG, 1X/DAY
     Route: 041
     Dates: start: 20150728, end: 20150728
  12. IRINOTECAN HCL [Suspect]
     Active Substance: IRINOTECAN HYDROCHLORIDE
     Indication: NEUROENDOCRINE CARCINOMA
     Dosage: 60 MG/M2, CYCLIC (DAYS 1, 8 AND 15, EVERY 28 DAYS)
     Dates: start: 201505
  13. IRINOTECAN HCL [Suspect]
     Active Substance: IRINOTECAN HYDROCHLORIDE
     Dosage: 73 MG, 1X/DAY
     Route: 041
     Dates: start: 20150811, end: 20150811
  14. IRINOTECAN HCL [Suspect]
     Active Substance: IRINOTECAN HYDROCHLORIDE
     Dosage: 73 MG, 1X/DAY
     Route: 041
     Dates: start: 20150728, end: 20150728
  15. IRINOTECAN HCL [Suspect]
     Active Substance: IRINOTECAN HYDROCHLORIDE
     Dosage: 73 MG, 1X/DAY
     Route: 041
     Dates: start: 20150804, end: 20150804
  16. CISPLATIN. [Suspect]
     Active Substance: CISPLATIN
     Indication: NEUROENDOCRINE CARCINOMA
     Dosage: 60 MG/M2, CYCLIC (DAY 1, EVERY 28 DAYS)
     Dates: start: 201505
  17. IRINOTECAN HCL [Suspect]
     Active Substance: IRINOTECAN HYDROCHLORIDE
     Dosage: 50 MG/M2, CYCLIC (DECREASED AND NOT ADMINISTERED ON DAY 15)
  18. IRINOTECAN HCL [Suspect]
     Active Substance: IRINOTECAN HYDROCHLORIDE
     Dosage: 91 MG, 1X/DAY
     Route: 041
     Dates: start: 20150703, end: 20150703
  19. DECADRON [Concomitant]
     Active Substance: DEXAMETHASONE
     Dosage: UNK
     Dates: start: 20150522, end: 20150814

REACTIONS (17)
  - Vomiting [Recovered/Resolved]
  - Diarrhoea [Recovered/Resolved]
  - Hypertension [Not Recovered/Not Resolved]
  - Febrile neutropenia [Recovered/Resolved]
  - Decreased appetite [Recovered/Resolved]
  - Gastric perforation [Recovered/Resolved]
  - Hiccups [Recovered/Resolved]
  - Malaise [Recovered/Resolved]
  - Agranulocytosis [Unknown]
  - Fatigue [Recovered/Resolved]
  - Dysgeusia [Not Recovered/Not Resolved]
  - Tumour lysis syndrome [Recovered/Resolved]
  - Thrombocytopenia [Recovered/Resolved]
  - Anaemia [Recovering/Resolving]
  - Nausea [Recovered/Resolved]
  - Neutropenia [Recovered/Resolved]
  - White blood cell count decreased [Recovered/Resolved]

NARRATIVE: CASE EVENT DATE: 20150524
